FAERS Safety Report 4994052-8 (Version None)
Quarter: 2006Q2

REPORT INFORMATION
  Report Type: 
  Country: None (occurrence: None)
  Receive Date: 20060504
  Receipt Date: 20060504
  Transmission Date: 20061013
  Serious: Yes (Other)
  Sender: FDA-Public Use
  Company Number: None

PATIENT
  Age: 15 Year
  Sex: Female
  Weight: 56.6996 kg

DRUGS (2)
  1. TRILEPTAL [Suspect]
     Indication: CONVULSION
     Dosage: 600 MG TWICE A DAY PO
     Route: 048
     Dates: start: 20060425, end: 20060501
  2. TRILEPTAL [Suspect]
     Indication: CONVULSION
     Dosage: 300 MG TWICE A DAY PO
     Route: 048
     Dates: start: 20060425, end: 20060501

REACTIONS (3)
  - DRUG HYPERSENSITIVITY [None]
  - PHARMACEUTICAL PRODUCT COMPLAINT [None]
  - REACTION TO DRUG EXCIPIENTS [None]
